FAERS Safety Report 8136857-0 (Version None)
Quarter: 2012Q1

REPORT INFORMATION
  Report Type: 
  Country: None (occurrence: None)
  Receive Date: 20120214
  Receipt Date: 20120203
  Transmission Date: 20120608
  Serious: Yes (Hospitalization, Disabling)
  Sender: FDA-Public Use
  Company Number: BR-ROCHE-1038775

PATIENT
  Sex: Female

DRUGS (7)
  1. XOLAIR [Suspect]
     Indication: PRODUCT USED FOR UNKNOWN INDICATION
     Route: 058
  2. INDAPEN [Concomitant]
  3. RABEPRAZOLE SODIUM [Concomitant]
  4. LONAZOLAC CALCIUM [Concomitant]
  5. CORTISONE ACETATE [Concomitant]
  6. SIMVACOR [Concomitant]
  7. FORMOTEROL FUMARATE [Concomitant]

REACTIONS (3)
  - FALL [None]
  - ANKLE FRACTURE [None]
  - PAIN [None]
